FAERS Safety Report 18721779 (Version 6)
Quarter: 2022Q2

REPORT INFORMATION
  Report Type: Report from Study
  Country: US (occurrence: US)
  Receive Date: 20210111
  Receipt Date: 20220610
  Transmission Date: 20220721
  Serious: Yes (Hospitalization, Other)
  Sender: FDA-Public Use
  Company Number: US-NOVARTISPH-NVSC2021US003362

PATIENT
  Sex: Female

DRUGS (1)
  1. KISQALI [Suspect]
     Active Substance: RIBOCICLIB
     Indication: Product used for unknown indication
     Dosage: UNK
     Route: 048

REACTIONS (15)
  - Loss of consciousness [Unknown]
  - Foot fracture [Unknown]
  - Fall [Unknown]
  - Spinal cord neoplasm [Unknown]
  - White blood cell count decreased [Unknown]
  - Vision blurred [Unknown]
  - Swelling [Unknown]
  - Blood sodium increased [Unknown]
  - Eye disorder [Unknown]
  - Weight decreased [Unknown]
  - Gastrooesophageal reflux disease [Unknown]
  - Stress [Unknown]
  - Stomach scan abnormal [Unknown]
  - Back pain [Unknown]
  - Product dose omission issue [Unknown]
